FAERS Safety Report 5903527-6 (Version None)
Quarter: 2008Q3

REPORT INFORMATION
  Report Type: 
  Country: None (occurrence: None)
  Receive Date: 20080919
  Receipt Date: 20080821
  Transmission Date: 20090109
  Serious: No
  Sender: FDA-Public Use
  Company Number: US-WYE-H05677808

PATIENT
  Sex: Female

DRUGS (1)
  1. PRISTIQ [Suspect]
     Dosage: UNSPECIFIED, ORAL
     Route: 048

REACTIONS (3)
  - FATIGUE [None]
  - INTENTIONAL DRUG MISUSE [None]
  - NAUSEA [None]
